FAERS Safety Report 24308777 (Version 1)
Quarter: 2024Q3

REPORT INFORMATION
  Report Type: Spontaneous
  Country: IT (occurrence: IT)
  Receive Date: 20240911
  Receipt Date: 20240911
  Transmission Date: 20241017
  Serious: Yes (Hospitalization, Other)
  Sender: MYLAN
  Company Number: IT-BAXTER-2024BAX023710

PATIENT
  Age: 64 Year
  Sex: Female
  Weight: 41 kg

DRUGS (47)
  1. PREDNISONE [Suspect]
     Active Substance: PREDNISONE
     Indication: Product used for unknown indication
     Dosage: UNK
     Route: 065
     Dates: start: 20231027, end: 20231229
  2. IFOSFAMIDE [Suspect]
     Active Substance: IFOSFAMIDE
     Indication: Diffuse large B-cell lymphoma stage IV
     Dosage: CYCLE 1 ARM 10
     Route: 042
     Dates: start: 20240204, end: 20240205
  3. IFOSFAMIDE [Suspect]
     Active Substance: IFOSFAMIDE
     Dosage: 5000 MILLIGRAM/SQ. METER, CYCLE 2 ARM 10
     Route: 042
     Dates: start: 20240306, end: 20240306
  4. RITUXIMAB [Suspect]
     Active Substance: RITUXIMAB
     Indication: Diffuse large B-cell lymphoma stage IV
     Dosage: UNK
     Route: 065
     Dates: start: 20231027, end: 20231229
  5. RITUXIMAB [Suspect]
     Active Substance: RITUXIMAB
     Dosage: C1 ARM 10
     Route: 042
     Dates: start: 20240203, end: 20240305
  6. RITUXIMAB [Suspect]
     Active Substance: RITUXIMAB
     Dosage: 375 MILLIGRAM/SQ. METER, C2 ARM 10
     Route: 042
     Dates: start: 20240305, end: 20240305
  7. EPCORITAMAB [Suspect]
     Active Substance: EPCORITAMAB
     Indication: Diffuse large B-cell lymphoma stage IV
     Dosage: 0.16 MILLIGRAM (C1D1, PRIMING DOSE OF 0.16 MG)
     Route: 058
     Dates: start: 20240205, end: 20240205
  8. EPCORITAMAB [Suspect]
     Active Substance: EPCORITAMAB
     Dosage: 0.8 MILLIGRAM (C1D8, THE INTERMEDIATE DOSE OF 0.8 MG)
     Route: 058
     Dates: start: 20240213, end: 20240213
  9. EPCORITAMAB [Suspect]
     Active Substance: EPCORITAMAB
     Dosage: 48 MILLIGRAM (C1D15, FULL DOSE OF 48 MG)
     Route: 058
     Dates: start: 20240220, end: 20240220
  10. EPCORITAMAB [Suspect]
     Active Substance: EPCORITAMAB
     Dosage: 48 MILLIGRAM (C2D1, 48 MG, DOSE ADMINISTERED PRIOR TO AE)
     Route: 058
     Dates: start: 20240307, end: 20240307
  11. EPCORITAMAB [Suspect]
     Active Substance: EPCORITAMAB
     Dosage: 48 MILLIGRAM (C2D8-C4D15, 48 MG)
     Route: 058
     Dates: start: 20240321, end: 20240510
  12. EPCORITAMAB [Suspect]
     Active Substance: EPCORITAMAB
     Dosage: C5D1 ONWARDS
     Route: 058
     Dates: start: 20240517
  13. VINCRISTINE [Suspect]
     Active Substance: VINCRISTINE
     Indication: Product used for unknown indication
     Dosage: UNK
     Route: 065
     Dates: start: 20231027, end: 20231229
  14. DOXORUBICIN [Suspect]
     Active Substance: DOXORUBICIN
     Indication: Product used for unknown indication
     Dosage: UNK
     Route: 065
     Dates: start: 20231027, end: 20231029
  15. CARBOPLATIN [Suspect]
     Active Substance: CARBOPLATIN
     Indication: Diffuse large B-cell lymphoma stage IV
     Dosage: CYCLE 1 ARM 10
     Route: 042
     Dates: start: 20240204, end: 20240204
  16. CARBOPLATIN [Suspect]
     Active Substance: CARBOPLATIN
     Dosage: 344.5 MILLIGRAM/SQ. METER, CYCLE 2 ARM 10
     Route: 042
     Dates: start: 20240306, end: 20240306
  17. ETOPOSIDE [Suspect]
     Active Substance: ETOPOSIDE
     Indication: Diffuse large B-cell lymphoma stage IV
     Dosage: C1 ARM 10
     Route: 042
     Dates: start: 20240203, end: 20240307
  18. ETOPOSIDE [Suspect]
     Active Substance: ETOPOSIDE
     Dosage: C2 ARM 10, 100 MG/M2 ON 07-MAR-2024
     Route: 042
     Dates: start: 20240305, end: 20240307
  19. CYCLOPHOSPHAMIDE [Suspect]
     Active Substance: CYCLOPHOSPHAMIDE
     Indication: Product used for unknown indication
     Dosage: UNK
     Route: 065
     Dates: start: 20231027, end: 20231229
  20. POTASSIUM CHLORIDE [Concomitant]
     Active Substance: POTASSIUM CHLORIDE
     Dosage: UNK
     Route: 065
     Dates: start: 20240216, end: 20240225
  21. ENOXAPARIN SODIUM [Concomitant]
     Active Substance: ENOXAPARIN SODIUM
     Dosage: UNK
     Route: 065
     Dates: start: 20231018
  22. ENOXAPARIN SODIUM [Concomitant]
     Active Substance: ENOXAPARIN SODIUM
     Dosage: UNK
     Route: 065
     Dates: start: 20240429
  23. MYCOSTATIN [Concomitant]
     Active Substance: NYSTATIN
     Dosage: UNK, ONGOING
     Route: 065
     Dates: start: 20240213
  24. PANTOPRAZOLE SODIUM [Concomitant]
     Active Substance: PANTOPRAZOLE SODIUM
     Dosage: UNK, ONGOING
     Route: 065
     Dates: start: 20240228
  25. METHYLPREDNISOLONE [Concomitant]
     Active Substance: METHYLPREDNISOLONE
     Indication: Prophylaxis
     Dosage: 80 MILLIGRAM
     Route: 042
     Dates: start: 20240213, end: 20240213
  26. METHYLPREDNISOLONE [Concomitant]
     Active Substance: METHYLPREDNISOLONE
     Dosage: 80 MILLIGRAM
     Route: 042
     Dates: start: 20240220, end: 20240220
  27. METHYLPREDNISOLONE [Concomitant]
     Active Substance: METHYLPREDNISOLONE
     Dosage: 80 MILLIGRAM
     Route: 042
     Dates: start: 20240305, end: 20240305
  28. METHYLPREDNISOLONE [Concomitant]
     Active Substance: METHYLPREDNISOLONE
     Dosage: 80 MILLIGRAM
     Route: 042
     Dates: start: 20240307, end: 20240307
  29. LEVOFLOXACIN [Concomitant]
     Active Substance: LEVOFLOXACIN
     Dosage: UNK, ONGOING
     Route: 065
     Dates: start: 20240211
  30. CEFTRIAXONE [Concomitant]
     Active Substance: CEFTRIAXONE\CEFTRIAXONE SODIUM
     Dosage: UNK
     Route: 065
     Dates: start: 20240224, end: 20240324
  31. ALLOPURINOL [Concomitant]
     Active Substance: ALLOPURINOL
     Dosage: UNK, ONGOING
     Route: 065
     Dates: start: 20231018
  32. FILGRASTIM [Concomitant]
     Active Substance: FILGRASTIM
     Dosage: UNK
     Route: 065
     Dates: start: 20240211, end: 20240602
  33. ONDANSETRON [Concomitant]
     Active Substance: ONDANSETRON
     Dosage: UNK
     Route: 065
     Dates: start: 20240203, end: 20240305
  34. ALLOPURINOL [Concomitant]
     Active Substance: ALLOPURINOL
     Dosage: UNK
     Route: 065
     Dates: start: 20231018, end: 20240307
  35. PREDNISONE [Concomitant]
     Active Substance: PREDNISONE
     Indication: Prophylaxis
     Dosage: 100 MILLIGRAM
     Route: 048
     Dates: start: 20240214, end: 20240216
  36. PREDNISONE [Concomitant]
     Active Substance: PREDNISONE
     Dosage: 100 MILLIGRAM
     Route: 048
     Dates: start: 20240221, end: 20240223
  37. PREDNISONE [Concomitant]
     Active Substance: PREDNISONE
     Dosage: 100 MILLIGRAM
     Route: 048
     Dates: start: 20240308, end: 20240310
  38. METOCLOPRAMIDE [Concomitant]
     Active Substance: METOCLOPRAMIDE
     Dosage: UNK
     Route: 065
     Dates: start: 20240210, end: 20240218
  39. FLUCONAZOLE [Concomitant]
     Active Substance: FLUCONAZOLE
     Dosage: UNK
     Route: 065
     Dates: start: 20240301, end: 20240307
  40. LOPERAMIDE [Concomitant]
     Active Substance: LOPERAMIDE
     Dosage: UNK
     Route: 065
     Dates: start: 20240211, end: 20240218
  41. ACETAMINOPHEN [Concomitant]
     Active Substance: ACETAMINOPHEN
     Indication: Premedication
     Dosage: UNK
     Route: 065
     Dates: start: 20240211, end: 20240221
  42. ACETAMINOPHEN [Concomitant]
     Active Substance: ACETAMINOPHEN
     Dosage: 1000 MILLIGRAM
     Route: 048
     Dates: start: 20240305, end: 20240305
  43. ACYCLOVIR [Concomitant]
     Active Substance: ACYCLOVIR
     Dosage: UNK
     Route: 065
     Dates: start: 20240301, end: 20240308
  44. TATIONIL [Concomitant]
     Dosage: UNK
     Route: 065
     Dates: start: 20240209, end: 20240214
  45. CHLORPHENIRAMINE MALEATE [Concomitant]
     Active Substance: CHLORPHENIRAMINE MALEATE
     Indication: Premedication
     Dosage: 10 MILLIGRAM, ONCE
     Route: 042
     Dates: start: 20240305, end: 20240305
  46. URSODIOL [Concomitant]
     Active Substance: URSODIOL
     Dosage: UNK
     Route: 065
     Dates: start: 20240209, end: 20240213
  47. SULFAMETHOXAZOLE AND TRIMETHOPRIM [Concomitant]
     Active Substance: SULFAMETHOXAZOLE\TRIMETHOPRIM
     Dosage: UNK, ONGOING
     Route: 065
     Dates: start: 20231025

REACTIONS (4)
  - Myocardial infarction [Not Recovered/Not Resolved]
  - Cold sweat [Unknown]
  - Chest discomfort [Unknown]
  - Dizziness [Unknown]

NARRATIVE: CASE EVENT DATE: 20240308
